FAERS Safety Report 20310756 (Version 2)
Quarter: 2022Q2

REPORT INFORMATION
  Report Type: Report from Study
  Country: US (occurrence: US)
  Receive Date: 20220107
  Receipt Date: 20220419
  Transmission Date: 20220721
  Serious: Yes (Other)
  Sender: FDA-Public Use
  Company Number: US-NOVARTISPH-NVSC2022US002043

PATIENT
  Age: 64 Year
  Sex: Female

DRUGS (1)
  1. GLATOPA [Suspect]
     Active Substance: GLATIRAMER ACETATE
     Indication: Product used for unknown indication
     Dosage: 40 MG, TIW (3 TIMES A WEEK)
     Route: 065
     Dates: start: 20220105, end: 20220105

REACTIONS (5)
  - Loss of consciousness [Unknown]
  - Injection site reaction [Recovering/Resolving]
  - Injection site discolouration [Recovering/Resolving]
  - Injection site haemorrhage [Recovering/Resolving]
  - Injection site swelling [Recovering/Resolving]

NARRATIVE: CASE EVENT DATE: 20220105
